FAERS Safety Report 22000498 (Version 2)
Quarter: 2023Q2

REPORT INFORMATION
  Report Type: Spontaneous
  Country: US (occurrence: US)
  Receive Date: 20230216
  Receipt Date: 20230619
  Transmission Date: 20230721
  Serious: No
  Sender: FDA-Public Use
  Company Number: US-SA-SAC20230213001397

PATIENT
  Sex: Female

DRUGS (2)
  1. DUPIXENT [Suspect]
     Active Substance: DUPILUMAB
     Dosage: 300 MG; FREQUENCY: OTHER
     Route: 058
  2. DUPIXENT [Suspect]
     Active Substance: DUPILUMAB
     Dosage: 300 MG, OTHER
     Route: 058

REACTIONS (4)
  - Headache [Unknown]
  - Erythema [Recovered/Resolved]
  - Injection site swelling [Recovered/Resolved]
  - Injection site pruritus [Recovered/Resolved]
